FAERS Safety Report 6110256-5 (Version None)
Quarter: 2009Q1

REPORT INFORMATION
  Report Type: 
  Country: None (occurrence: None)
  Receive Date: 20090309
  Receipt Date: 20090309
  Transmission Date: 20090719
  Serious: Yes (Other)
  Sender: FDA-Public Use
  Company Number: None

PATIENT
  Age: 57 Year
  Sex: Female
  Weight: 73.2559 kg

DRUGS (1)
  1. LEVAQUIN [Suspect]
     Indication: ACUTE SINUSITIS
     Dosage: ONE TABLET ONCE DAILY PO
     Route: 048
     Dates: start: 20090223, end: 20090306

REACTIONS (14)
  - ABNORMAL DREAMS [None]
  - ARTHRALGIA [None]
  - BACK PAIN [None]
  - EMOTIONAL DISORDER [None]
  - EYE IRRITATION [None]
  - GAIT DISTURBANCE [None]
  - JOINT STIFFNESS [None]
  - JOINT SWELLING [None]
  - MOVEMENT DISORDER [None]
  - PAIN IN EXTREMITY [None]
  - SLEEP DISORDER [None]
  - TENDONITIS [None]
  - VISION BLURRED [None]
  - VISUAL IMPAIRMENT [None]
